FAERS Safety Report 7329727-9 (Version None)
Quarter: 2011Q1

REPORT INFORMATION
  Report Type: 
  Country: None (occurrence: None)
  Receive Date: 20110223
  Receipt Date: 20110216
  Transmission Date: 20110831
  Serious: Yes (Hospitalization)
  Sender: FDA-Public Use
  Company Number: CIP11000374

PATIENT
  Sex: Female

DRUGS (2)
  1. BENET (RISEDRONATE SODIUM) TABLET, 17.5MG [Suspect]
     Indication: MUSCULOSKELETAL PAIN
     Dosage: 17.5 MG ONE DOSE ONLY, ORAL
     Route: 048
     Dates: start: 20110205, end: 20110205
  2. BENET (RISEDRONATE SODIUM) TABLET, 17.5MG [Suspect]
     Indication: OFF LABEL USE
     Dosage: 17.5 MG ONE DOSE ONLY, ORAL
     Route: 048
     Dates: start: 20110205, end: 20110205

REACTIONS (3)
  - HYPOKINESIA [None]
  - DYSPNOEA [None]
  - PAIN [None]
